FAERS Safety Report 9188771 (Version 3)
Quarter: 2017Q1

REPORT INFORMATION
  Report Type: Report from Study
  Country: US (occurrence: US)
  Receive Date: 20130326
  Receipt Date: 20170127
  Transmission Date: 20170429
  Serious: Yes (Hospitalization)
  Sender: FDA-Public Use
  Company Number: US-ROCHE-1184448

PATIENT
  Age: 45 Year
  Sex: Male

DRUGS (23)
  1. RANIBIZUMAB [Suspect]
     Active Substance: RANIBIZUMAB
     Dosage: ROUTE OF ADMN- RIGHT EYE
     Route: 065
     Dates: start: 20120531
  2. RANIBIZUMAB [Suspect]
     Active Substance: RANIBIZUMAB
     Dosage: ROUTE OF ADMN- RIGHT EYE
     Route: 065
     Dates: start: 20120621
  3. SITAGLIPTIN PHOSPHATE [Concomitant]
     Active Substance: SITAGLIPTIN PHOSPHATE
     Route: 048
  4. PROMETHAZINE [Concomitant]
     Active Substance: PROMETHAZINE\PROMETHAZINE HYDROCHLORIDE
     Dosage: DOSE: 25/MG
     Route: 048
  5. TOBRAMYCIN. [Concomitant]
     Active Substance: TOBRAMYCIN
     Dosage: ROUTE: TOPICAL OCULAR
     Route: 061
     Dates: start: 20120510
  6. AZOR (UNITED STATES) [Concomitant]
     Dosage: DOSE:10/40 MG
     Route: 048
  7. PREDNISOLONE ACETATE. [Concomitant]
     Active Substance: PREDNISOLONE ACETATE
     Dosage: TOPICAL OCULAR
     Route: 061
     Dates: start: 20120510, end: 20120524
  8. RANIBIZUMAB [Suspect]
     Active Substance: RANIBIZUMAB
     Indication: DIABETIC RETINOPATHY
     Dosage: RIGHT EYE
     Route: 065
     Dates: start: 20120329
  9. RANIBIZUMAB [Suspect]
     Active Substance: RANIBIZUMAB
     Dosage: ROUTE OF ADMN- RIGHT EYE
     Route: 065
     Dates: start: 20121112
  10. OLMESARTAN MEDOXOMIL. [Concomitant]
     Active Substance: OLMESARTAN MEDOXOMIL
     Route: 048
  11. RANIBIZUMAB [Suspect]
     Active Substance: RANIBIZUMAB
     Dosage: ROUTE OF ADMN- RIGHT EYE
     Route: 065
     Dates: start: 20130109
  12. SCOPOLAMINE HYDROBROMIDE. [Concomitant]
     Active Substance: SCOPOLAMINE HYDROBROMIDE
     Dosage: TOPICAL-OCULAR
     Route: 061
     Dates: start: 20120510
  13. INSULIN DETEMIR [Concomitant]
     Active Substance: INSULIN DETEMIR
     Dosage: 10 UNITS
     Route: 058
  14. RANIBIZUMAB [Suspect]
     Active Substance: RANIBIZUMAB
     Dosage: ROUTE OF ADMN- RIGHT EYE
     Route: 065
     Dates: start: 20120430
  15. RANIBIZUMAB [Suspect]
     Active Substance: RANIBIZUMAB
     Dosage: ROUTE OF ADMN- RIGHT EYE
     Route: 065
     Dates: start: 20121210
  16. METFORMIN [Concomitant]
     Active Substance: METFORMIN HYDROCHLORIDE
     Route: 048
  17. HYDROCHLOROTHIAZIDE/LISINOPRIL [Concomitant]
     Active Substance: HYDROCHLOROTHIAZIDE\LISINOPRIL
     Dosage: DOSE: 20/25 MG
     Route: 048
  18. RANIBIZUMAB [Suspect]
     Active Substance: RANIBIZUMAB
     Dosage: ROUTE OF ADMN- RIGHT EYE
     Route: 065
     Dates: start: 20120716
  19. RANIBIZUMAB [Suspect]
     Active Substance: RANIBIZUMAB
     Dosage: ROUTE OF ADMN- RIGHT EYE
     Route: 065
     Dates: start: 20120822
  20. RANIBIZUMAB [Suspect]
     Active Substance: RANIBIZUMAB
     Dosage: ROUTE OF ADMN- RIGHT EYE
     Route: 065
     Dates: start: 20130204
  21. BEVACIZUMAB [Suspect]
     Active Substance: BEVACIZUMAB
     Indication: DIABETIC RETINOPATHY
     Dosage: ONE TIME TREATMENT
     Route: 050
     Dates: start: 20120505, end: 20120505
  22. EZETIMIBE. [Concomitant]
     Active Substance: EZETIMIBE
     Route: 065
  23. PREDNISOLONE ACETATE. [Concomitant]
     Active Substance: PREDNISOLONE ACETATE
     Dosage: TOPICAL OCULAR
     Route: 061
     Dates: start: 20120531

REACTIONS (4)
  - Fluid retention [Recovered/Resolved]
  - Renal impairment [Recovered/Resolved]
  - Hypertension [Not Recovered/Not Resolved]
  - Renal failure [Not Recovered/Not Resolved]

NARRATIVE: CASE EVENT DATE: 20121220
